FAERS Safety Report 4860340-9 (Version None)
Quarter: 2005Q4

REPORT INFORMATION
  Report Type: 
  Country: None (occurrence: None)
  Receive Date: 20051219
  Receipt Date: 20051209
  Transmission Date: 20060501
  Serious: Yes (Other)
  Sender: FDA-Public Use
  Company Number: CA-BRISTOL-MYERS SQUIBB COMPANY-13219910

PATIENT
  Age: 85 Year
  Sex: Male

DRUGS (14)
  1. TEQUIN [Suspect]
     Route: 048
  2. ASPIRIN [Concomitant]
     Route: 048
  3. AMIODARONE HCL [Concomitant]
     Route: 048
  4. ATROVENT [Concomitant]
  5. FENOFIBRATE [Concomitant]
  6. FLUTICASONE [Concomitant]
  7. FUROSEMIDE [Concomitant]
     Route: 048
  8. K-DUR 10 [Concomitant]
     Route: 048
  9. LEVOTHYROXINE SODIUM [Concomitant]
     Route: 048
  10. METOLAZONE [Concomitant]
     Route: 048
  11. NITROGLYCERIN [Concomitant]
  12. POTASSIUM CHLORIDE [Concomitant]
     Route: 042
  13. RANITIDINE [Concomitant]
  14. SALBUTAMOL [Concomitant]

REACTIONS (1)
  - HYPERGLYCAEMIA [None]
